FAERS Safety Report 6387309-X (Version None)
Quarter: 2009Q4

REPORT INFORMATION
  Report Type: 
  Country: None (occurrence: None)
  Receive Date: 20091002
  Receipt Date: 20090930
  Transmission Date: 20100525
  Serious: Yes (Other)
  Sender: FDA-Public Use
  Company Number: US-GILEAD-2009-0023642

PATIENT
  Sex: Female
  Weight: 63.56 kg

DRUGS (18)
  1. LETAIRIS [Suspect]
     Indication: PULMONARY ARTERIAL HYPERTENSION
     Route: 048
     Dates: start: 20090303
  2. FUROSEMIDE [Concomitant]
  3. TYLENOL (CAPLET) [Concomitant]
  4. LEVOTHYROXINE SODIUM [Concomitant]
  5. AZATHIOPRINE [Concomitant]
  6. NIFEDIAC [Concomitant]
  7. LISINOPRIL [Concomitant]
  8. CEFDINIR [Concomitant]
  9. SIMVASTATIN [Concomitant]
  10. FEXOFENADINE [Concomitant]
  11. GABAPENTIN [Concomitant]
  12. METOPROLOL [Concomitant]
  13. LORTAB [Concomitant]
  14. ACTOS [Concomitant]
  15. AMIODARONE [Concomitant]
  16. PREVACID [Concomitant]
  17. OMEPRAZOLE [Concomitant]
  18. ASPIRIN [Concomitant]

REACTIONS (1)
  - RENAL DISORDER [None]
